FAERS Safety Report 4384611-8 (Version None)
Quarter: 2004Q2

REPORT INFORMATION
  Report Type: 
  Country: None (occurrence: None)
  Receive Date: 20040625
  Receipt Date: 20030411
  Transmission Date: 20050107
  Serious: Yes (Other)
  Sender: FDA-Public Use
  Company Number: US-BRISTOL-MYERS SQUIBB COMPANY-12238465

PATIENT
  Age: 81 Year
  Sex: Female
  Weight: 39 kg

DRUGS (6)
  1. SINEMET [Suspect]
     Route: 048
  2. ZESTRIL [Suspect]
     Route: 048
  3. IMDUR [Suspect]
     Route: 048
  4. ARTANE [Suspect]
     Route: 048
  5. PLAVIX [Concomitant]
     Route: 048
  6. LESCOL [Concomitant]

REACTIONS (6)
  - DEHYDRATION [None]
  - DISORIENTATION [None]
  - DIZZINESS [None]
  - HYPOTENSION [None]
  - MEDICATION ERROR [None]
  - VOMITING [None]
